FAERS Safety Report 5841109-5 (Version None)
Quarter: 2008Q3

REPORT INFORMATION
  Report Type: 
  Country: None (occurrence: None)
  Receive Date: 20080811
  Receipt Date: 20080811
  Transmission Date: 20090109
  Serious: Yes (Other)
  Sender: FDA-Public Use
  Company Number: None

PATIENT
  Sex: Female
  Weight: 58.9676 kg

DRUGS (2)
  1. ALREX [Suspect]
     Indication: CONJUNCTIVITIS ALLERGIC
     Dosage: 1 GTT OU QID
     Route: 047
     Dates: start: 20080717
  2. EFFEXOR XR [Concomitant]

REACTIONS (3)
  - EYE IRRITATION [None]
  - EYE SWELLING [None]
  - OCULAR HYPERAEMIA [None]
